FAERS Safety Report 10727401 (Version 1)
Quarter: 2015Q1

REPORT INFORMATION
  Report Type: Spontaneous
  Country: IT (occurrence: IT)
  Receive Date: 20150121
  Receipt Date: 20150121
  Transmission Date: 20150721
  Serious: Yes (Hospitalization)
  Sender: FDA-Public Use
  Company Number: IT-BAYER-2015-000762

PATIENT
  Age: 17 Year
  Sex: Female

DRUGS (2)
  1. CARDIOASPIRIN [Suspect]
     Active Substance: ASPIRIN
     Dosage: 3000 MG, ONCE
     Dates: start: 20140210, end: 20140210
  2. ASPIRINA [Suspect]
     Active Substance: ASPIRIN
     Dosage: 5000 MG, ONCE
     Dates: start: 20140210, end: 20140210

REACTIONS (3)
  - Drug abuse [Unknown]
  - Heart rate increased [Unknown]
  - Intentional overdose [Unknown]

NARRATIVE: CASE EVENT DATE: 20140210
